FAERS Safety Report 6441906 (Version 5)
Quarter: 2013Q2

REPORT INFORMATION
  Report Type: Report from Study
  Country: KW (occurrence: KW)
  Receive Date: 20071015
  Receipt Date: 20130619
  Transmission Date: 20140414
  Serious: Yes (Death, Life-Threatening, Hospitalization)
  Sender: FDA-Public Use
  Company Number: PHHO2007KW12585

PATIENT
  Age: 82 Year
  Sex: Male
  Weight: 79 kg

DRUGS (7)
  1. ZOLEDRONATE [Suspect]
     Indication: PROSTATE CANCER
     Dosage: 4 MG, EVERY 4 WEEKS
     Route: 042
     Dates: start: 20061108, end: 20070721
  2. CALCIUM [Concomitant]
  3. VITAMIN D [Concomitant]
  4. OLFEN [Concomitant]
  5. TRAMAL [Concomitant]
     Dosage: UNK
  6. TAZOCIN [Concomitant]
  7. LOSEC [Concomitant]

REACTIONS (19)
  - Hypocalcaemia [Fatal]
  - Malignant neoplasm progression [Fatal]
  - Metastatic neoplasm [Fatal]
  - Thrombocytopenia [Fatal]
  - Sepsis [Fatal]
  - Leukocytosis [Fatal]
  - Anaemia [Fatal]
  - Ecchymosis [Fatal]
  - Fatigue [Fatal]
  - Haemoptysis [Fatal]
  - Pyrexia [Fatal]
  - Sinus tachycardia [Fatal]
  - Pain [Fatal]
  - Bone marrow failure [Fatal]
  - Hormone level abnormal [Fatal]
  - Metastases to bone marrow [Fatal]
  - Spinal cord compression [Not Recovered/Not Resolved]
  - Lung infection [Not Recovered/Not Resolved]
  - Asthenia [Not Recovered/Not Resolved]
